FAERS Safety Report 6439968-0 (Version None)
Quarter: 2009Q4

REPORT INFORMATION
  Report Type: 
  Country: None (occurrence: None)
  Receive Date: 20091113
  Receipt Date: 20091106
  Transmission Date: 20100525
  Serious: Yes (Other)
  Sender: FDA-Public Use
  Company Number: DE-RB-024382-09

PATIENT
  Age: 50 Year
  Sex: Female

DRUGS (1)
  1. SUBUTEX [Suspect]
     Indication: BONE PAIN
     Route: 065
     Dates: start: 20091031, end: 20091031

REACTIONS (3)
  - CIRCULATORY COLLAPSE [None]
  - EXPIRED DRUG ADMINISTERED [None]
  - NAUSEA [None]
